FAERS Safety Report 11095141 (Version 1)
Quarter: 2015Q2

REPORT INFORMATION
  Report Type: Spontaneous
  Country: US (occurrence: US)
  Receive Date: 20150506
  Receipt Date: 20150506
  Transmission Date: 20150821
  Serious: No
  Sender: FDA-Public Use
  Company Number: US-SA-2014SA084511

PATIENT
  Age: 59 Year
  Sex: Female

DRUGS (2)
  1. PRAVASTATIN [Concomitant]
     Active Substance: PRAVASTATIN\PRAVASTATIN SODIUM
     Indication: BLOOD CHOLESTEROL
  2. APIDRA [Suspect]
     Active Substance: INSULIN GLULISINE
     Indication: DIABETES MELLITUS
     Dosage: DOSE: UPTO 50 UNITS
     Route: 058
     Dates: start: 20140411

REACTIONS (2)
  - Drug ineffective [Unknown]
  - Blood glucose increased [Recovered/Resolved]

NARRATIVE: CASE EVENT DATE: 201406
